FAERS Safety Report 10250114 (Version 1)
Quarter: 2014Q2

REPORT INFORMATION
  Report Type: Spontaneous
  Country: US (occurrence: US)
  Receive Date: 20140620
  Receipt Date: 20140620
  Transmission Date: 20141212
  Serious: No
  Sender: FDA-Public Use
  Company Number: US-BRISTOL-MYERS SQUIBB COMPANY-20672358

PATIENT
  Age: 61 Year
  Sex: Female
  Weight: 120.18 kg

DRUGS (8)
  1. ELIQUIS [Suspect]
     Dates: start: 201203
  2. ATENOLOL [Concomitant]
  3. LOTREL [Concomitant]
     Dosage: 1 DF= 5/10 MG.
  4. ATIVAN [Concomitant]
     Indication: MUSCLE SPASMS
  5. LANTUS [Concomitant]
  6. NOVOLOG [Concomitant]
  7. TYLENOL [Concomitant]
     Indication: PAIN
     Dosage: EXTRA LENGTH
  8. LIDOCAINE [Concomitant]
     Indication: BACK PAIN
     Dosage: PATCH

REACTIONS (1)
  - Dizziness [Unknown]
